FAERS Safety Report 19406203 (Version 1)
Quarter: 2021Q2

REPORT INFORMATION
  Report Type: Spontaneous
  Country: FR (occurrence: FR)
  Receive Date: 20210611
  Receipt Date: 20210611
  Transmission Date: 20210717
  Serious: Yes (Hospitalization, Other)
  Sender: FDA-Public Use
  Company Number: FR-MYLANLABS-2021M1020868

PATIENT
  Age: 58 Year
  Sex: Male
  Weight: 72 kg

DRUGS (4)
  1. VORICONAZOLE. [Suspect]
     Active Substance: VORICONAZOLE
     Indication: ARTHRITIS FUNGAL
     Dosage: 600 MILLIGRAM
     Route: 048
     Dates: start: 20201103, end: 20201203
  2. ACECLOFENAC [Suspect]
     Active Substance: ACECLOFENAC
     Indication: ARTHRALGIA
     Dosage: 200 MILLIGRAM, QD
     Route: 048
     Dates: start: 20200928, end: 20201011
  3. NAPROXENE                          /00256201/ [Suspect]
     Active Substance: NAPROXEN
     Indication: ARTHRALGIA
     Dosage: 1100 MILLIGRAM, QD
     Route: 048
     Dates: start: 20200916, end: 20200923
  4. AUGMENTINE                         /02043401/ [Concomitant]
     Active Substance: AMOXICILLIN\CLAVULANATE POTASSIUM
     Indication: OEDEMA PERIPHERAL
     Dosage: 3 GRAM, QD
     Route: 048
     Dates: start: 20200916, end: 20200919

REACTIONS (2)
  - Hepatic cytolysis [Recovering/Resolving]
  - Arthritis fungal [Recovering/Resolving]

NARRATIVE: CASE EVENT DATE: 20201027
